FAERS Safety Report 13703346 (Version 1)
Quarter: 2017Q2

REPORT INFORMATION
  Report Type: Spontaneous
  Country: US (occurrence: US)
  Receive Date: 20170629
  Receipt Date: 20170629
  Transmission Date: 20170830
  Serious: Yes (Other)
  Sender: FDA-Public Use
  Company Number: US-BAYER-2017-121674

PATIENT
  Age: 14 Year
  Sex: Female

DRUGS (1)
  1. SORAFENIB (RAF KINASE INHIBITOR) [Suspect]
     Active Substance: SORAFENIB
     Indication: PERIPHERAL NERVE SHEATH TUMOUR MALIGNANT
     Dosage: 400 MG, BID
     Route: 048
     Dates: start: 200704

REACTIONS (6)
  - Metastases to muscle [None]
  - Metastases to lung [None]
  - Metastases to abdominal wall [None]
  - Off label use [None]
  - Product use in unapproved indication [None]
  - Product use issue [None]

NARRATIVE: CASE EVENT DATE: 200706
